FAERS Safety Report 4556517-2 (Version None)
Quarter: 2005Q1

REPORT INFORMATION
  Report Type: 
  Country: None (occurrence: None)
  Receive Date: 20050114
  Receipt Date: 20050104
  Transmission Date: 20050727
  Serious: Yes (Hospitalization, Other)
  Sender: FDA-Public Use
  Company Number: US-2004-033291

PATIENT
  Age: 67 Year
  Sex: Male
  Weight: 90.7 kg

DRUGS (5)
  1. GM-CSF (SARGRAMOSTIM) INJECTION [Suspect]
     Indication: MALIGNANT MELANOMA
     Dosage: 250MCG/D X 14D ON, 14D OFF, SUBCUTANEOUS
     Route: 058
     Dates: start: 20040817, end: 20040927
  2. THALIDOMIDE(THALIDOMIDE) [Suspect]
     Indication: MALIGNANT MELANOMA
     Dosage: 300 MG, 1X/DAY, ORAL
     Route: 048
     Dates: start: 20040817
  3. HYDROCHLOROTHIAZIDE [Concomitant]
  4. PEPCID [Concomitant]
  5. TUMS [Concomitant]

REACTIONS (9)
  - ABASIA [None]
  - CONFUSIONAL STATE [None]
  - DEEP VEIN THROMBOSIS [None]
  - DRUG INTERACTION [None]
  - ERYTHEMA [None]
  - FATIGUE [None]
  - FEELING HOT [None]
  - PULMONARY EMBOLISM [None]
  - VOMITING [None]
